FAERS Safety Report 19190738 (Version 2)
Quarter: 2021Q2

REPORT INFORMATION
  Report Type: Report from Study
  Country: GB (occurrence: GB)
  Receive Date: 20210428
  Receipt Date: 20210511
  Transmission Date: 20210717
  Serious: Yes (Hospitalization)
  Sender: FDA-Public Use
  Company Number: GB-PFIZER INC-2021427836

PATIENT
  Weight: 28 kg

DRUGS (23)
  1. GEMTUZUMAB OZOGAMICIN [Suspect]
     Active Substance: GEMTUZUMAB OZOGAMICIN
     Indication: ACUTE MYELOID LEUKAEMIA
     Dosage: 3.3 MG (FREQUENCY: OTHER)
     Route: 042
     Dates: start: 20210315, end: 20210322
  2. SEPTRIN [Concomitant]
     Active Substance: SULFAMETHOXAZOLE\TRIMETHOPRIM
     Indication: ANTIBIOTIC PROPHYLAXIS
     Dosage: 480 MG, 2X/DAY
     Dates: start: 20210410, end: 20210411
  3. TAZOCIN [Concomitant]
     Active Substance: PIPERACILLIN SODIUM\TAZOBACTAM SODIUM
     Indication: ANTIBIOTIC THERAPY
     Dosage: 2.7 G, 1X/DAY
     Route: 042
     Dates: start: 20210327, end: 20210405
  4. VANCOMYCIN [Concomitant]
     Active Substance: VANCOMYCIN
     Indication: ANTIBIOTIC THERAPY
     Dosage: 495 MG (Q.H)
     Dates: start: 20210405, end: 20210411
  5. COTRIMOXAZOLE [Concomitant]
     Active Substance: SULFAMETHOXAZOLE\TRIMETHOPRIM
     Indication: ANTIBIOTIC THERAPY
     Dosage: 480, AS NEEDED
     Dates: start: 20210323, end: 20210411
  6. KAY?CEE?L [Concomitant]
     Indication: BLOOD ELECTROLYTES ABNORMAL
     Dosage: 10 MMOL, 2X/DAY
     Dates: start: 20210327
  7. MEROPENEM. [Concomitant]
     Active Substance: MEROPENEM
     Indication: ANTIBIOTIC THERAPY
     Dosage: 600 MG, 3X/DAY(8 HOURLY)
     Dates: start: 20210405, end: 20210411
  8. MORPHINE SULFATE. [Concomitant]
     Active Substance: MORPHINE SULFATE
     Indication: ANALGESIC THERAPY
     Dosage: 15 MG, 2X/DAY
     Dates: start: 20210409
  9. LANSOPRAZOLE. [Concomitant]
     Active Substance: LANSOPRAZOLE
     Indication: HYPERCHLORHYDRIA
     Dosage: 15 MG, 1X/DAY
     Dates: start: 20210328, end: 20210405
  10. HYOSCINE BUTYLBROMIDE [Concomitant]
     Active Substance: BUTYLSCOPOLAMINE BROMIDE
     Indication: ABDOMINAL PAIN
     Dosage: 10 MG, 3X/DAY
     Dates: start: 20210328, end: 20210330
  11. KAY?CEE?L [Concomitant]
     Dosage: 15 MMOL, 2X/DAY
     Dates: start: 20210329
  12. GENTAMIN [Concomitant]
     Indication: ANTIBIOTIC THERAPY
     Dosage: 215 MG (OTHER)
     Dates: start: 20210325, end: 20210407
  13. METRONIDAZOLE. [Concomitant]
     Active Substance: METRONIDAZOLE
     Indication: ANTIBIOTIC THERAPY
     Dosage: 230 MG, 3X/DAY
     Dates: start: 20210408, end: 20210412
  14. MOVICOL [Concomitant]
     Active Substance: POLYETHYLENE GLYCOL 3350\POTASSIUM CHLORIDE\SODIUM BICARBONATE\SODIUM CHLORIDE
     Indication: CONSTIPATION
     Dosage: 2 SACHETS, AS NEEDED
     Dates: start: 20210323
  15. DOCUSATE SODIUM. [Concomitant]
     Active Substance: DOCUSATE SODIUM
     Indication: CONSTIPATION
     Dosage: 25 MG, 3X/DAY
     Dates: start: 20210325, end: 20210330
  16. LEVOMEPROMAZINE [Concomitant]
     Active Substance: LEVOMEPROMAZINE
     Indication: PSYCHOTIC DISORDER
     Dosage: 3 MG
     Dates: start: 20210323, end: 20210402
  17. ONDANSETRON [Concomitant]
     Active Substance: ONDANSETRON
     Indication: VOMITING
     Dosage: 6 MG, 3X/DAY
     Dates: start: 20210323, end: 20210411
  18. AMBISOME [Concomitant]
     Active Substance: AMPHOTERICIN B
     Indication: ANTIFUNGAL PROPHYLAXIS
     Dosage: 10 ML, AS NEEDED
     Dates: start: 20210323, end: 20210325
  19. SODIUM BICARBONATE BP [Concomitant]
     Active Substance: SODIUM BICARBONATE
     Indication: EXCESSIVE CERUMEN PRODUCTION
     Dosage: UNK UNK, 2X/DAY
     Dates: start: 20210325
  20. MITOXANTRONE HCL [Suspect]
     Active Substance: MITOXANTRONE HYDROCHLORIDE
     Indication: ACUTE MYELOID LEUKAEMIA
     Dosage: 52 MG/M2, 1X/DAY
     Route: 042
     Dates: start: 20210312, end: 20210321
  21. METRONIDAZOLE. [Concomitant]
     Active Substance: METRONIDAZOLE
     Indication: INFECTION PROTOZOAL
  22. LACTULOSE. [Concomitant]
     Active Substance: LACTULOSE
     Indication: CONSTIPATION
     Dosage: 10 ML, AS NEEDED
     Dates: start: 20210323, end: 20210325
  23. AMILORIDE [Concomitant]
     Active Substance: AMILORIDE
     Indication: DIURETIC THERAPY
     Dosage: 5 MG, 2X/DAY
     Dates: start: 20210408, end: 20210411

REACTIONS (1)
  - Colitis [Not Recovered/Not Resolved]

NARRATIVE: CASE EVENT DATE: 20210413
